FAERS Safety Report 18986066 (Version 1)
Quarter: 2021Q1

REPORT INFORMATION
  Report Type: Spontaneous
  Country: MX (occurrence: MX)
  Receive Date: 20210309
  Receipt Date: 20210309
  Transmission Date: 20210420
  Serious: Yes (Other)
  Sender: FDA-Public Use
  Company Number: MX-ROCHE-2783979

PATIENT
  Sex: Female

DRUGS (2)
  1. HERCEPTIN [Suspect]
     Active Substance: TRASTUZUMAB
     Indication: COLON CANCER METASTATIC
     Route: 041
     Dates: start: 2018
  2. PERJETA [Suspect]
     Active Substance: PERTUZUMAB
     Indication: COLON CANCER METASTATIC
     Route: 042
     Dates: start: 2018

REACTIONS (1)
  - Neoplasm recurrence [Unknown]
